FAERS Safety Report 7681793-7 (Version None)
Quarter: 2011Q3

REPORT INFORMATION
  Report Type: 
  Country: None (occurrence: None)
  Receive Date: 20110812
  Receipt Date: 20110803
  Transmission Date: 20111222
  Serious: Yes (Hospitalization, Other)
  Sender: FDA-Public Use
  Company Number: CO-ASTRAZENECA-2011SE47056

PATIENT
  Age: 45 Year
  Sex: Female

DRUGS (1)
  1. NEXIUM [Suspect]
     Indication: GASTRITIS
     Route: 048
     Dates: start: 20040101

REACTIONS (3)
  - COUNTERFEIT DRUG ADMINISTERED [None]
  - ABDOMINAL PAIN [None]
  - CONSTIPATION [None]
